FAERS Safety Report 6992095-6 (Version None)
Quarter: 2010Q3

REPORT INFORMATION
  Report Type: 
  Country: None (occurrence: None)
  Receive Date: 20100917
  Receipt Date: 20100907
  Transmission Date: 20110219
  Serious: Yes (Death)
  Sender: FDA-Public Use
  Company Number: JP-PFIZER INC-2010112465

PATIENT
  Age: 78 Year
  Sex: Male

DRUGS (8)
  1. LYRICA [Suspect]
     Indication: POST HERPETIC NEURALGIA
     Dosage: UNK
     Route: 048
     Dates: start: 20100831, end: 20100903
  2. SPIRONOLACTONE [Suspect]
     Dosage: UNK
     Route: 048
  3. OMEPRAL [Suspect]
     Dosage: UNK
     Route: 048
  4. GANATON [Suspect]
     Dosage: UNK
     Route: 048
  5. UNIPHYL [Suspect]
     Dosage: UNK
     Route: 048
  6. LASIX [Suspect]
     Dosage: UNK
     Route: 048
  7. RHYTHMY [Suspect]
     Dosage: UNK
     Route: 048
  8. JUVELA [Suspect]
     Dosage: UNK
     Route: 048

REACTIONS (1)
  - DEATH [None]
